FAERS Safety Report 15965757 (Version 2)
Quarter: 2019Q1

REPORT INFORMATION
  Report Type: Spontaneous
  Country: DE (occurrence: DE)
  Receive Date: 20190215
  Receipt Date: 20190314
  Transmission Date: 20190418
  Serious: Yes (Hospitalization, Other)
  Sender: FDA-Public Use
  Company Number: DE-AUROBINDO-AUR-APL-2019-007923

PATIENT

DRUGS (21)
  1. BEVACIZUMAB. [Suspect]
     Active Substance: BEVACIZUMAB
     Dosage: 520 MILLIGRAM
     Route: 042
     Dates: start: 20111205, end: 20111205
  2. PACLITAXEL. [Suspect]
     Active Substance: PACLITAXEL
     Indication: BREAST CANCER METASTATIC
     Dosage: 80 MILLIGRAM/SQ. METER
     Route: 042
     Dates: start: 20110825, end: 20110922
  3. XELODA [Suspect]
     Active Substance: CAPECITABINE
     Dosage: 3000 MILLIGRAM
     Route: 065
     Dates: start: 20111019
  4. RANITIDINE. [Suspect]
     Active Substance: RANITIDINE
     Indication: PRODUCT USED FOR UNKNOWN INDICATION
     Dosage: UNK
     Route: 042
     Dates: start: 20110825
  5. XELODA [Suspect]
     Active Substance: CAPECITABINE
     Dosage: 2300 MILLIGRAM
     Route: 065
     Dates: start: 20171109
  6. XELODA [Suspect]
     Active Substance: CAPECITABINE
     Dosage: 3000 MILLIGRAM
     Route: 065
     Dates: start: 20111206, end: 20111206
  7. ARIXTRA [Concomitant]
     Active Substance: FONDAPARINUX SODIUM
     Indication: THROMBOSIS PROPHYLAXIS
     Dosage: UNK
     Route: 065
     Dates: start: 20111219
  8. TAVEGIL [Suspect]
     Active Substance: CLEMASTINE FUMARATE
     Indication: BREAST CANCER METASTATIC
     Dosage: 2 MILLIGRAM
     Route: 042
     Dates: start: 20110825
  9. ZOMETA [Suspect]
     Active Substance: ZOLEDRONIC ACID
     Indication: BREAST CANCER METASTATIC
     Dosage: 3.3 MILLIGRAM
     Route: 042
     Dates: start: 20110825, end: 20110825
  10. DENOSUMAB [Concomitant]
     Active Substance: DENOSUMAB
     Indication: BREAST CANCER
     Dosage: 60 MILLIGRAM
     Route: 065
     Dates: start: 20101020
  11. DENOSUMAB [Concomitant]
     Active Substance: DENOSUMAB
     Dosage: 120 MILLIGRAM
     Route: 065
     Dates: start: 20120116
  12. HYDROCHLOROTHIAZIDE. [Concomitant]
     Active Substance: HYDROCHLOROTHIAZIDE
     Indication: PRODUCT USED FOR UNKNOWN INDICATION
     Dosage: UNK
     Route: 065
     Dates: start: 201001
  13. TORASEMIDE [Concomitant]
     Active Substance: TORSEMIDE
     Indication: PRODUCT USED FOR UNKNOWN INDICATION
     Dosage: 3 DOSAGE FORM, ONCE A DAY
     Route: 065
     Dates: start: 20100101
  14. BEVACIZUMAB. [Suspect]
     Active Substance: BEVACIZUMAB
     Indication: BREAST CANCER
     Dosage: 530 MILLIGRAM
     Route: 042
     Dates: start: 20110825, end: 20110825
  15. XELODA [Suspect]
     Active Substance: CAPECITABINE
     Indication: BREAST CANCER
     Dosage: 1300 MILLIGRAM/SQ. METER
     Route: 065
     Dates: start: 20111019
  16. XELODA [Suspect]
     Active Substance: CAPECITABINE
     Dosage: 2300 MILLIGRAM
     Route: 065
     Dates: start: 20111019, end: 20111206
  17. XELODA [Suspect]
     Active Substance: CAPECITABINE
     Dosage: 1300 MILLIGRAM/SQ. METER
     Route: 065
     Dates: start: 20111206
  18. GRANISETRON [Suspect]
     Active Substance: GRANISETRON
     Indication: BREAST CANCER METASTATIC
     Dosage: 1 MILLIGRAM
     Route: 042
     Dates: start: 20110825
  19. DEXAMETHASONE. [Suspect]
     Active Substance: DEXAMETHASONE
     Indication: BREAST CANCER METASTATIC
     Dosage: 8 MILLIGRAM
     Route: 042
     Dates: start: 20110825
  20. IBUPROFEN. [Concomitant]
     Active Substance: IBUPROFEN
     Indication: PRODUCT USED FOR UNKNOWN INDICATION
     Dosage: 1 DOSAGE FORM, DAILY
     Route: 065
     Dates: start: 20110831
  21. METOPROLOL. [Concomitant]
     Active Substance: METOPROLOL
     Indication: PRODUCT USED FOR UNKNOWN INDICATION
     Dosage: 2 DOSAGE FORM, ONCE A DAY
     Route: 065
     Dates: start: 20100101

REACTIONS (15)
  - General physical health deterioration [Recovered/Resolved]
  - Diarrhoea [Recovered/Resolved]
  - Pulpitis dental [Recovered/Resolved]
  - Mucosal inflammation [Recovered/Resolved]
  - Dyspnoea [Recovered/Resolved]
  - Vomiting [Recovered/Resolved]
  - Hypertension [Recovering/Resolving]
  - Nausea [Recovered/Resolved]
  - Weight decreased [Recovered/Resolved]
  - Sensory disturbance [Recovered/Resolved]
  - Tooth erosion [Recovered/Resolved]
  - Periodontitis [Not Recovered/Not Resolved]
  - Venous thrombosis limb [Recovering/Resolving]
  - Dysphagia [Recovered/Resolved]
  - Thrombosis [Not Recovered/Not Resolved]

NARRATIVE: CASE EVENT DATE: 20110827
